FAERS Safety Report 23983374 (Version 2)
Quarter: 2025Q2

REPORT INFORMATION
  Report Type: Report from Study
  Country: US (occurrence: US)
  Receive Date: 20240617
  Receipt Date: 20250410
  Transmission Date: 20250717
  Serious: Yes (Death, Other)
  Sender: PHARMING GROUP
  Company Number: US-PHARMING-PHAUS2024000320

PATIENT

DRUGS (1)
  1. LENIOLISIB PHOSPHATE [Suspect]
     Active Substance: LENIOLISIB PHOSPHATE
     Indication: Activated PI3 kinase delta syndrome
     Dosage: 70 MILLIGRAM, BID
     Dates: start: 20230606, end: 20230727

REACTIONS (2)
  - Pneumonia klebsiella [Fatal]
  - Septic shock [Fatal]
